FAERS Safety Report 4866062-2 (Version None)
Quarter: 2005Q4

REPORT INFORMATION
  Report Type: 
  Country: None (occurrence: None)
  Receive Date: 20051221
  Receipt Date: 20051207
  Transmission Date: 20060501
  Serious: Yes (Hospitalization)
  Sender: FDA-Public Use
  Company Number: 0205060

PATIENT
  Age: 67 Year
  Sex: Female

DRUGS (5)
  1. DEPODUR [Suspect]
     Indication: POSTOPERATIVE ANALGESIA
     Dosage: 15 MG (ONCE), EPIDURAL
     Route: 008
     Dates: start: 20051206, end: 20051206
  2. DIPRIVAN [Concomitant]
  3. ZEMURON [Concomitant]
  4. FENTANYL [Concomitant]
  5. ZOFRAN [Concomitant]

REACTIONS (3)
  - HYPOTENSION [None]
  - HYPOTHERMIA [None]
  - POST PROCEDURAL COMPLICATION [None]
